FAERS Safety Report 19182096 (Version 1)
Quarter: 2021Q2

REPORT INFORMATION
  Report Type: Spontaneous
  Country: ES (occurrence: ES)
  Receive Date: 20210427
  Receipt Date: 20210427
  Transmission Date: 20210717
  Serious: Yes (Death)
  Sender: FDA-Public Use
  Company Number: ES-BRISTOL-MYERS SQUIBB COMPANY-BMS-2021-039686

PATIENT

DRUGS (2)
  1. IPILIMUMAB [Suspect]
     Active Substance: IPILIMUMAB
     Indication: MESOTHELIOMA
     Dosage: 1 MG/K, Q6WK
     Route: 065
  2. NIVOLUMAB [Suspect]
     Active Substance: NIVOLUMAB
     Indication: MESOTHELIOMA
     Dosage: 3MG/K, Q2W
     Route: 065

REACTIONS (2)
  - COVID-19 [Fatal]
  - Intentional product use issue [Unknown]
